FAERS Safety Report 9526189 (Version 2)
Quarter: 2013Q4

REPORT INFORMATION
  Report Type: Spontaneous
  Country: SA (occurrence: SA)
  Receive Date: 20130916
  Receipt Date: 20131025
  Transmission Date: 20140711
  Serious: Yes (Death)
  Sender: FDA-Public Use
  Company Number: SA-ABBVIE-13P-259-1145905-00

PATIENT
  Age: 42 Year
  Sex: Male
  Weight: 63 kg

DRUGS (8)
  1. RITONAVIR [Suspect]
     Indication: HIV INFECTION
     Dates: start: 20110315, end: 20111112
  2. RITONAVIR [Suspect]
     Indication: ACQUIRED IMMUNODEFICIENCY SYNDROME
  3. CLARITHROMYCIN [Suspect]
     Indication: OPPORTUNISTIC INFECTION PROPHYLAXIS
     Dates: start: 20110315, end: 20111112
  4. EMTRICITABINE [Suspect]
     Indication: HIV INFECTION
  5. TENOFOVIR DISOPROXIL FUMARATE [Suspect]
     Indication: HIV INFECTION
  6. ATOVAQUONE [Suspect]
     Indication: OPPORTUNISTIC INFECTION PROPHYLAXIS
     Dates: start: 20110315, end: 20111112
  7. DARUNAVIR [Concomitant]
     Indication: HIV INFECTION
     Dates: start: 20110315, end: 20111112
  8. TRUVADA [Concomitant]
     Indication: PRODUCT USED FOR UNKNOWN INDICATION
     Dates: start: 20110315, end: 20111112

REACTIONS (2)
  - Histiocytosis haematophagic [Fatal]
  - Immune reconstitution inflammatory syndrome [Fatal]
